FAERS Safety Report 24281916 (Version 1)
Quarter: 2024Q3

REPORT INFORMATION
  Report Type: Spontaneous
  Country: US (occurrence: US)
  Receive Date: 20240904
  Receipt Date: 20240904
  Transmission Date: 20241016
  Serious: Yes (Other)
  Sender: CHEPLAPHARM
  Company Number: US-ROCHE-10000065626

PATIENT
  Sex: Female

DRUGS (5)
  1. CAPECITABINE [Suspect]
     Active Substance: CAPECITABINE
     Indication: Product used for unknown indication
     Dates: end: 20240521
  2. CAPECITABINE [Suspect]
     Active Substance: CAPECITABINE
     Indication: Product used for unknown indication
  3. TRASTUZUMAB [Suspect]
     Active Substance: TRASTUZUMAB
     Indication: Product used for unknown indication
  4. TUKYSA [Suspect]
     Active Substance: TUCATINIB
     Indication: Breast cancer
  5. TUCATINIB [Suspect]
     Active Substance: TUCATINIB
     Indication: Product used for unknown indication

REACTIONS (3)
  - Parkinson^s disease [Unknown]
  - Myelosuppression [Unknown]
  - Spinal osteoarthritis [Unknown]
